FAERS Safety Report 14657485 (Version 2)
Quarter: 2018Q2

REPORT INFORMATION
  Report Type: Spontaneous
  Country: JP (occurrence: JP)
  Receive Date: 20180320
  Receipt Date: 20180625
  Transmission Date: 20180711
  Serious: Yes (Hospitalization, Disabling, Other)
  Sender: FDA-Public Use
  Company Number: JP-009507513-1803JPN001868J

PATIENT
  Age: 73 Year
  Sex: Male
  Weight: 73 kg

DRUGS (1)
  1. ZETIA [Suspect]
     Active Substance: EZETIMIBE
     Indication: DYSLIPIDAEMIA
     Dosage: 10 MG, QD
     Route: 048
     Dates: end: 20180303

REACTIONS (8)
  - Pneumonia bacterial [Unknown]
  - Hiccups [Recovering/Resolving]
  - Organising pneumonia [Recovered/Resolved]
  - Atrial fibrillation [Unknown]
  - Delirium [Unknown]
  - Decreased appetite [Unknown]
  - Rhabdomyolysis [Recovered/Resolved with Sequelae]
  - Renal disorder [Unknown]

NARRATIVE: CASE EVENT DATE: 20180219
